FAERS Safety Report 6469307-0 (Version None)
Quarter: 2009Q4

REPORT INFORMATION
  Report Type: 
  Country: None (occurrence: None)
  Receive Date: 20091203
  Receipt Date: 20090312
  Transmission Date: 20100525
  Serious: Yes (Hospitalization)
  Sender: FDA-Public Use
  Company Number: US-ELI_LILLY_AND_COMPANY-US200704004756

PATIENT
  Sex: Female

DRUGS (7)
  1. FORTEO [Suspect]
     Indication: OSTEOPOROSIS
     Dosage: 20 UG, DAILY (1/D)
     Dates: start: 20070216
  2. FORTEO [Suspect]
     Dosage: 20 UG, DAILY (1/D)
  3. SYNTHROID [Concomitant]
     Indication: HYPOTHYROIDISM
     Dates: start: 20010101
  4. AMITRIPTYLINE [Concomitant]
  5. ASPIRIN [Concomitant]
  6. EFFEXOR [Concomitant]
  7. KLONOPIN [Concomitant]

REACTIONS (5)
  - DEPRESSION [None]
  - DYSPHONIA [None]
  - FATIGUE [None]
  - HYPOACUSIS [None]
  - THYROID NEOPLASM [None]
